FAERS Safety Report 17466553 (Version 1)
Quarter: 2020Q1

REPORT INFORMATION
  Report Type: Spontaneous
  Country: CN (occurrence: CN)
  Receive Date: 20200227
  Receipt Date: 20200227
  Transmission Date: 20200409
  Serious: Yes (Death)
  Sender: FDA-Public Use
  Company Number: CN-MICRO LABS LIMITED-ML2020-00486

PATIENT
  Age: 54 Year
  Sex: Male

DRUGS (5)
  1. LEVOFLOXACIN. [Suspect]
     Active Substance: LEVOFLOXACIN
  2. CEFOPERAZONE [Suspect]
     Active Substance: CEFOPERAZONE
  3. TAZOBACTAM [Suspect]
     Active Substance: TAZOBACTAM
  4. IMIPENEM [Suspect]
     Active Substance: IMIPENEM
  5. LOW MOLECULAR WEIGHT HEPARIN [Suspect]
     Active Substance: UNSPECIFIED INGREDIENT
     Route: 058

REACTIONS (1)
  - Drug ineffective [Fatal]
